FAERS Safety Report 18355640 (Version 1)
Quarter: 2020Q4

REPORT INFORMATION
  Report Type: Spontaneous
  Country: US (occurrence: US)
  Receive Date: 20201006
  Receipt Date: 20201006
  Transmission Date: 20210114
  Serious: Yes (Hospitalization)
  Sender: FDA-Public Use
  Company Number: None

PATIENT
  Age: 65 Year
  Sex: Male

DRUGS (12)
  1. TADALAFIL 20MG [Suspect]
     Active Substance: TADALAFIL
     Indication: PULMONARY ARTERIAL HYPERTENSION
     Route: 048
     Dates: start: 20190517
  2. BUMETANIDE. [Concomitant]
     Active Substance: BUMETANIDE
  3. TRAMADOL. [Concomitant]
     Active Substance: TRAMADOL
  4. ATOROVASTATIN [Concomitant]
  5. TADALAFIL. [Concomitant]
     Active Substance: TADALAFIL
  6. DIAZEPAM. [Concomitant]
     Active Substance: DIAZEPAM
  7. ELQUIS [Concomitant]
  8. SPRINOLOACT [Concomitant]
  9. AMBRISENTAN 10MG [Suspect]
     Active Substance: AMBRISENTAN
     Indication: PULMONARY ARTERIAL HYPERTENSION
     Route: 048
     Dates: start: 20190517
  10. AMIODDARONE [Concomitant]
  11. ALLOPURINOL. [Concomitant]
     Active Substance: ALLOPURINOL
  12. OXYCODONE AND ACETAMINOPHEN [Concomitant]
     Active Substance: ACETAMINOPHEN\OXYCODONE HYDROCHLORIDE

REACTIONS (1)
  - Surgery [None]

NARRATIVE: CASE EVENT DATE: 20200910
